FAERS Safety Report 25951162 (Version 3)
Quarter: 2025Q4

REPORT INFORMATION
  Report Type: Spontaneous
  Country: JP (occurrence: JP)
  Receive Date: 20251023
  Receipt Date: 20251118
  Transmission Date: 20260117
  Serious: Yes (Other)
  Sender: ROCHE
  Company Number: JP-CHUGAI-2025033109

PATIENT
  Age: 37 Year
  Sex: Male

DRUGS (2)
  1. PIASKY [Suspect]
     Active Substance: CROVALIMAB-AKKZ
     Indication: Paroxysmal nocturnal haemoglobinuria
     Dosage: 340 MILLIGRAM
     Route: 058
     Dates: start: 20250929, end: 20251014
  2. PIASKY [Suspect]
     Active Substance: CROVALIMAB-AKKZ
     Dosage: 340 MILLIGRAM
     Route: 058
     Dates: start: 20251023

REACTIONS (3)
  - Rhabdomyolysis [Recovered/Resolved]
  - Injection site pain [Unknown]
  - Incorrect route of product administration [Unknown]

NARRATIVE: CASE EVENT DATE: 20251014
